FAERS Safety Report 22014904 (Version 2)
Quarter: 2023Q2

REPORT INFORMATION
  Report Type: Spontaneous
  Country: US (occurrence: US)
  Receive Date: 20230221
  Receipt Date: 20230405
  Transmission Date: 20230722
  Serious: Yes (Hospitalization, Other)
  Sender: FDA-Public Use
  Company Number: US-BRISTOL-MYERS SQUIBB COMPANY-2023-023609

PATIENT
  Age: 72 Year
  Sex: Male
  Weight: 122.47 kg

DRUGS (2)
  1. POMALYST [Suspect]
     Active Substance: POMALIDOMIDE
     Indication: Plasma cell myeloma
     Dosage: 2 MG, ONCE DAILY
     Route: 048
     Dates: start: 202301, end: 20230207
  2. XPOVIO [Concomitant]
     Active Substance: SELINEXOR
     Indication: Plasma cell myeloma
     Dosage: X1 WEEK 3 WEEKS AND 1 WK OFF
     Route: 048
     Dates: start: 20230201, end: 20230206

REACTIONS (2)
  - Osteomyelitis [Recovering/Resolving]
  - Cholecystitis [Recovering/Resolving]

NARRATIVE: CASE EVENT DATE: 20230207
